FAERS Safety Report 14110631 (Version 1)
Quarter: 2017Q4

REPORT INFORMATION
  Report Type: Spontaneous
  Country: FR (occurrence: FR)
  Receive Date: 20171020
  Receipt Date: 20171020
  Transmission Date: 20180321
  Serious: Yes (Hospitalization)
  Sender: FDA-Public Use
  Company Number: PHHY2017FR151585

PATIENT
  Age: 78 Year
  Sex: Female

DRUGS (3)
  1. OROZAMUDOL [Suspect]
     Active Substance: TRAMADOL
     Indication: PAIN
     Dosage: 3 DF, QD
     Route: 048
     Dates: start: 20170830, end: 20170912
  2. TEGRETOL [Suspect]
     Active Substance: CARBAMAZEPINE
     Indication: BIPOLAR DISORDER
     Dosage: UNK
     Route: 065
     Dates: start: 20170912, end: 20170914
  3. OROZAMUDOL [Suspect]
     Active Substance: TRAMADOL
     Dosage: 2 DF, QD
     Route: 048
     Dates: start: 20170912, end: 20170920

REACTIONS (2)
  - Rash pruritic [Recovered/Resolved]
  - Eczema [Recovered/Resolved]

NARRATIVE: CASE EVENT DATE: 20170914
